FAERS Safety Report 7707213-1 (Version None)
Quarter: 2011Q3

REPORT INFORMATION
  Report Type: 
  Country: None (occurrence: None)
  Receive Date: 20110824
  Receipt Date: 20110810
  Transmission Date: 20111222
  Serious: Yes (Hospitalization)
  Sender: FDA-Public Use
  Company Number: PHHY2011FR73076

PATIENT
  Sex: Female

DRUGS (4)
  1. METHOTREXATE [Concomitant]
     Dosage: UNK UKN, UNK
  2. METFORMIN HCL [Concomitant]
     Dosage: UNK UKN, UNK
  3. ESCITALOPRAM OXALATE [Suspect]
     Indication: DEPRESSION
     Dosage: UNK UKN, UNK
     Dates: start: 20110601, end: 20110706
  4. VALSARTAN  AND HYDROCHLOROTHIAZIDE [Suspect]
     Indication: HYPERTENSION
     Dosage: 160 MG VALSARTAN/ 25 MG HYDROCHLOROTHIAZIDE

REACTIONS (1)
  - HYPONATRAEMIA [None]
